FAERS Safety Report 21780593 (Version 2)
Quarter: 2023Q1

REPORT INFORMATION
  Report Type: Other
  Country: IN (occurrence: None)
  Receive Date: 20221227
  Receipt Date: 20230220
  Transmission Date: 20230418
  Serious: Yes (Other)
  Sender: FDA-Public Use
  Company Number: IN-ROCHE-3249846

PATIENT
  Age: 62 Year
  Sex: Female

DRUGS (2)
  1. ALECENSA [Suspect]
     Active Substance: ALECTINIB HYDROCHLORIDE
     Indication: Non-small cell lung cancer
     Route: 048
     Dates: start: 20210710
  2. ALECENSA [Suspect]
     Active Substance: ALECTINIB HYDROCHLORIDE
     Indication: Lung cancer metastatic

REACTIONS (9)
  - Dysphonia [Unknown]
  - Productive cough [Unknown]
  - Pneumonia [Unknown]
  - Lymphadenopathy [Unknown]
  - Cough [Unknown]
  - Haemorrhage [Unknown]
  - Dyspnoea [Unknown]
  - Pyrexia [Unknown]
  - Lung consolidation [Unknown]

NARRATIVE: CASE EVENT DATE: 20210722
